FAERS Safety Report 4345288-0 (Version None)
Quarter: 2004Q2

REPORT INFORMATION
  Report Type: 
  Country: None (occurrence: None)
  Receive Date: 20040420
  Receipt Date: 20040414
  Transmission Date: 20050107
  Serious: Yes (Hospitalization)
  Sender: FDA-Public Use
  Company Number: 2004UW07427

PATIENT
  Age: 21 Year
  Sex: Female

DRUGS (3)
  1. SEROQUEL [Suspect]
  2. MYCELEX [Suspect]
     Dosage: 10 MIG TID
     Dates: start: 20040312
  3. ZYPREXA [Concomitant]

REACTIONS (3)
  - CHEST PAIN [None]
  - DRUG INTERACTION [None]
  - TRISMUS [None]
